FAERS Safety Report 8016087-3 (Version None)
Quarter: 2011Q4

REPORT INFORMATION
  Report Type: 
  Country: None (occurrence: None)
  Receive Date: 20111228
  Receipt Date: 20111228
  Transmission Date: 20120403
  Serious: No
  Sender: FDA-Public Use
  Company Number: None

PATIENT
  Age: 58 Year
  Sex: Female
  Weight: 50.8029 kg

DRUGS (2)
  1. REMERON [Suspect]
     Indication: MAJOR DEPRESSION
     Dosage: 45MG DAILY ORAL  OFF + ON
     Route: 048
     Dates: start: 20010101
  2. SIMVASTATIN [Concomitant]

REACTIONS (5)
  - ALCOHOL USE [None]
  - SHOULDER OPERATION [None]
  - FALL [None]
  - TREMOR [None]
  - PAIN [None]
